FAERS Safety Report 15561650 (Version 1)
Quarter: 2018Q4

REPORT INFORMATION
  Report Type: Spontaneous
  Country: US (occurrence: US)
  Receive Date: 20181029
  Receipt Date: 20181029
  Transmission Date: 20190205
  Serious: No
  Sender: FDA-Public Use
  Company Number: US-GLAXOSMITHKLINE-US2018GSK189848

PATIENT
  Age: 60 Year
  Sex: Female

DRUGS (1)
  1. NUCALA [Suspect]
     Active Substance: MEPOLIZUMAB
     Dosage: 100 MG, CYC
     Route: 065

REACTIONS (3)
  - Anxiety [Unknown]
  - Abdominal pain upper [Unknown]
  - Blood pressure increased [Unknown]
